FAERS Safety Report 18995197 (Version 2)
Quarter: 2021Q1

REPORT INFORMATION
  Report Type: Spontaneous
  Country: BG (occurrence: BG)
  Receive Date: 20210310
  Receipt Date: 20210325
  Transmission Date: 20210420
  Serious: Yes (Hospitalization, Other)
  Sender: FDA-Public Use
  Company Number: BG-BAXTER-2021BAX004295

PATIENT
  Age: 75 Year
  Sex: Female
  Weight: 52 kg

DRUGS (3)
  1. LOZAPH [Concomitant]
     Indication: PRODUCT USED FOR UNKNOWN INDICATION
     Route: 065
  2. MANNITOL BAXTER 10% SOLUTION FOR INFUSION [Suspect]
     Active Substance: MANNITOL
     Indication: INTRAOCULAR PRESSURE INCREASED
     Route: 041
     Dates: start: 20210219, end: 20210222
  3. NEBILET [Concomitant]
     Active Substance: NEBIVOLOL
     Indication: PRODUCT USED FOR UNKNOWN INDICATION
     Route: 065

REACTIONS (3)
  - Disorientation [Recovered/Resolved]
  - Speech disorder [Recovered/Resolved]
  - Tremor [Recovered/Resolved]

NARRATIVE: CASE EVENT DATE: 20210222
